FAERS Safety Report 14953214 (Version 2)
Quarter: 2020Q3

REPORT INFORMATION
  Report Type: Spontaneous
  Country: JP (occurrence: JP)
  Receive Date: 20180530
  Receipt Date: 20200925
  Transmission Date: 20201102
  Serious: Yes (Hospitalization, Disabling, Other)
  Sender: FDA-Public Use
  Company Number: JP-TEVA-2018-JP-879030

PATIENT
  Age: 74 Year
  Sex: Female

DRUGS (12)
  1. RITUXIMAB. [Concomitant]
     Active Substance: RITUXIMAB
     Dosage: (2ND CYCLE)
     Route: 041
     Dates: start: 201607
  2. GANCICLOVIR. [Suspect]
     Active Substance: GANCICLOVIR
     Indication: CYTOMEGALOVIRUS CHORIORETINITIS
     Route: 042
     Dates: start: 20170201
  3. BENDAMUSTINE HYDROCHLORIDE. [Suspect]
     Active Substance: BENDAMUSTINE HYDROCHLORIDE
     Dosage: 2ND CYCLE
     Route: 042
     Dates: start: 201607
  4. VALACICLOVIR [Suspect]
     Active Substance: VALACYCLOVIR HYDROCHLORIDE
     Indication: PRODUCT USED FOR UNKNOWN INDICATION
     Route: 048
     Dates: start: 20170715
  5. RITUXIMAB. [Concomitant]
     Active Substance: RITUXIMAB
     Dosage: 1ST CYCLE
     Route: 041
     Dates: start: 201606
  6. BENDAMUSTINE HYDROCHLORIDE. [Suspect]
     Active Substance: BENDAMUSTINE HYDROCHLORIDE
     Dosage: 4TH CYCLE
     Route: 042
     Dates: start: 201701
  7. RITUXIMAB. [Concomitant]
     Active Substance: RITUXIMAB
     Dosage: (4TH CYCLE)
     Route: 041
     Dates: start: 201701
  8. BENDAMUSTINE HYDROCHLORIDE. [Suspect]
     Active Substance: BENDAMUSTINE HYDROCHLORIDE
     Indication: B-CELL LYMPHOMA
     Dosage: 6 CYCLES
     Route: 042
     Dates: start: 201305
  9. BENDAMUSTINE HYDROCHLORIDE. [Suspect]
     Active Substance: BENDAMUSTINE HYDROCHLORIDE
     Dosage: 1 ST CYCLE
     Route: 042
     Dates: start: 201606
  10. BENDAMUSTINE HYDROCHLORIDE. [Suspect]
     Active Substance: BENDAMUSTINE HYDROCHLORIDE
     Dosage: 3RD CYCLE
     Route: 042
     Dates: start: 201608
  11. RITUXIMAB. [Concomitant]
     Active Substance: RITUXIMAB
     Indication: B-CELL LYMPHOMA
     Dosage: (6 CYCLES OF BR THERAPY AND 2 CYCLES OF RITUXIMAB MONOTHERAPY)
     Route: 041
     Dates: start: 201305
  12. RITUXIMAB. [Concomitant]
     Active Substance: RITUXIMAB
     Dosage: (3RD CYCLE)
     Route: 041
     Dates: start: 201608

REACTIONS (3)
  - Liver disorder [Recovering/Resolving]
  - White blood cell count decreased [Recovering/Resolving]
  - Cytomegalovirus chorioretinitis [Recovering/Resolving]

NARRATIVE: CASE EVENT DATE: 20160801
